FAERS Safety Report 7989210-4 (Version None)
Quarter: 2011Q4

REPORT INFORMATION
  Report Type: 
  Country: None (occurrence: None)
  Receive Date: 20111215
  Receipt Date: 20111215
  Transmission Date: 20120403
  Serious: No
  Sender: FDA-Public Use
  Company Number: None

PATIENT
  Age: 75 Year
  Sex: Male

DRUGS (2)
  1. GABAPENTIN [Suspect]
     Dates: start: 20100920, end: 20101011
  2. ACYCLOVIR [Suspect]
     Dates: start: 20100909, end: 20101011

REACTIONS (9)
  - ASPARTATE AMINOTRANSFERASE INCREASED [None]
  - JAUNDICE [None]
  - BLOOD ALKALINE PHOSPHATASE INCREASED [None]
  - MENTAL IMPAIRMENT [None]
  - BLOOD BILIRUBIN INCREASED [None]
  - FAILURE TO THRIVE [None]
  - CHOLELITHIASIS [None]
  - RASH [None]
  - CHOLESTASIS [None]
